FAERS Safety Report 5310690-7 (Version None)
Quarter: 2007Q2

REPORT INFORMATION
  Report Type: 
  Country: None (occurrence: None)
  Receive Date: 20070428
  Receipt Date: 20070417
  Transmission Date: 20071010
  Serious: Yes (Other)
  Sender: FDA-Public Use
  Company Number: US-PFIZER INC-2007031029

PATIENT

DRUGS (1)
  1. ADRIAMYCIN PFS [Suspect]

REACTIONS (2)
  - DEAFNESS [None]
  - MONONEUROPATHY [None]
